FAERS Safety Report 17611552 (Version 2)
Quarter: 2020Q2

REPORT INFORMATION
  Report Type: Not Available
  Country: US (occurrence: US)
  Receive Date: 20200401
  Receipt Date: 20200422
  Transmission Date: 20200713
  Serious: No
  Sender: FDA-Public Use
  Company Number: US-NEUROCRINE BIOSCIENCES INC.-2020NBI01007

PATIENT
  Sex: Male
  Weight: 70 kg

DRUGS (8)
  1. RISPERDAL [Concomitant]
     Active Substance: RISPERIDONE
     Route: 048
  2. INGREZZA [Suspect]
     Active Substance: VALBENAZINE
     Route: 048
     Dates: start: 20191112
  3. TEMAZEPAM. [Concomitant]
     Active Substance: TEMAZEPAM
     Route: 048
  4. TRAZODONE [Concomitant]
     Active Substance: TRAZODONE HYDROCHLORIDE
     Route: 048
  5. VRAYLAR [Concomitant]
     Active Substance: CARIPRAZINE
     Route: 048
  6. ACETAMINOPHEN. [Concomitant]
     Active Substance: ACETAMINOPHEN
  7. MIRTAZAPINE. [Concomitant]
     Active Substance: MIRTAZAPINE
     Route: 048
  8. INGREZZA [Suspect]
     Active Substance: VALBENAZINE
     Indication: TARDIVE DYSKINESIA
     Route: 048
     Dates: start: 20191104, end: 20191111

REACTIONS (1)
  - Alcohol poisoning [Unknown]
